FAERS Safety Report 21364830 (Version 1)
Quarter: 2022Q3

REPORT INFORMATION
  Report Type: Spontaneous
  Country: CN (occurrence: CN)
  Receive Date: 20220922
  Receipt Date: 20220922
  Transmission Date: 20221027
  Serious: Yes (Life-Threatening, Hospitalization, Other)
  Sender: FDA-Public Use
  Company Number: CN-FreseniusKabi-FK202212688

PATIENT
  Age: 52 Year
  Sex: Female
  Weight: 58.00 kg

DRUGS (2)
  1. SMOFLIPID [Suspect]
     Active Substance: FISH OIL\MEDIUM-CHAIN TRIGLYCERIDES\OLIVE OIL\SOYBEAN OIL
     Indication: Cerebral haemorrhage
     Route: 041
     Dates: start: 20220818, end: 20220818
  2. Aminic [Concomitant]
     Indication: Cerebral haemorrhage
     Route: 041
     Dates: start: 20220818, end: 20220818

REACTIONS (1)
  - Circulatory collapse [Recovered/Resolved]

NARRATIVE: CASE EVENT DATE: 20220818
